FAERS Safety Report 10450187 (Version 2)
Quarter: 2014Q3

REPORT INFORMATION
  Report Type: Spontaneous
  Country: US (occurrence: US)
  Receive Date: 20140912
  Receipt Date: 20140912
  Transmission Date: 20150326
  Serious: No
  Sender: FDA-Public Use
  Company Number: US-PFIZER INC-2014235891

PATIENT
  Age: 53 Year
  Sex: Female
  Weight: 48.07 kg

DRUGS (1)
  1. PREMARIN [Suspect]
     Active Substance: ESTROGENS, CONJUGATED
     Indication: HORMONE LEVEL ABNORMAL
     Dosage: UNK
     Route: 067
     Dates: start: 2013, end: 201408

REACTIONS (3)
  - Ovarian disorder [Unknown]
  - Malaise [Unknown]
  - Gait disturbance [Unknown]
